FAERS Safety Report 10468523 (Version 2)
Quarter: 2014Q4

REPORT INFORMATION
  Report Type: Report from Study
  Country: BR (occurrence: BR)
  Receive Date: 20140922
  Receipt Date: 20141007
  Transmission Date: 20150528
  Serious: Yes (Hospitalization, Other)
  Sender: FDA-Public Use
  Company Number: PHHY2014BR123206

PATIENT
  Age: 87 Year
  Sex: Male
  Weight: 65 kg

DRUGS (4)
  1. FORASEQ [Suspect]
     Active Substance: BUDESONIDE\FORMOTEROL FUMARATE
     Indication: BRONCHOSTENOSIS
     Dosage: 2 DF, BID
     Route: 055
  2. FORASEQ [Suspect]
     Active Substance: BUDESONIDE\FORMOTEROL FUMARATE
     Dosage: 1 DF, BID
     Route: 065
  3. ALENIA                             /01538101/ [Suspect]
     Active Substance: BUDESONIDE\FORMOTEROL FUMARATE
     Indication: LUNG DISORDER
     Dosage: IN THE MORNING AND AFTERNOON
     Route: 055
  4. ALENIA                             /01538101/ [Suspect]
     Active Substance: BUDESONIDE\FORMOTEROL FUMARATE
     Indication: BRONCHOSTENOSIS

REACTIONS (12)
  - Influenza [Recovered/Resolved]
  - Akinesia [Unknown]
  - Thyroid disorder [Unknown]
  - Carotid artery thrombosis [Unknown]
  - Hypokinesia [Not Recovered/Not Resolved]
  - Fatigue [Recovering/Resolving]
  - Pain [Recovered/Resolved]
  - Cerebrovascular accident [Recovering/Resolving]
  - Hypersensitivity [Unknown]
  - Atrophy [Not Recovered/Not Resolved]
  - Lipids increased [Unknown]
  - Blood pressure increased [Recovering/Resolving]

NARRATIVE: CASE EVENT DATE: 20120325
